FAERS Safety Report 20994087 (Version 3)
Quarter: 2024Q4

REPORT INFORMATION
  Report Type: Spontaneous
  Country: CA (occurrence: CA)
  Receive Date: 20220622
  Receipt Date: 20241121
  Transmission Date: 20250115
  Serious: Yes (Other)
  Sender: MYLAN
  Company Number: CA-MYLANLABS-2022M1046112

PATIENT
  Sex: Female

DRUGS (57)
  1. ZOPICLONE [Interacting]
     Active Substance: ZOPICLONE
     Indication: Insomnia
     Dosage: 1 DOSAGE FORM, QD
     Route: 065
  2. AMLODIPINE [Interacting]
     Active Substance: AMLODIPINE BESYLATE
     Indication: Product used for unknown indication
     Dosage: 1 DOSAGE FORM, QD (1 EVERY 1 DAY)
     Route: 065
  3. ARIPIPRAZOLE [Interacting]
     Active Substance: ARIPIPRAZOLE
     Indication: Product used for unknown indication
     Dosage: UNK
     Route: 065
  4. LEVOTHYROXINE [Interacting]
     Active Substance: LEVOTHYROXINE
     Indication: Product used for unknown indication
     Dosage: 1 DOSAGE FORM
     Route: 065
  5. SYNTHROID [Interacting]
     Active Substance: LEVOTHYROXINE SODIUM
     Indication: Product used for unknown indication
     Dosage: UNK
     Route: 065
  6. INFLUENZA VIRUS VACCINE [Interacting]
     Active Substance: INFLUENZA VIRUS VACCINE
     Indication: Product used for unknown indication
     Dosage: 0.2 MILLILITER
     Route: 065
  7. INFLUENZA VIRUS VACCINE [Interacting]
     Active Substance: INFLUENZA VIRUS VACCINE
     Dosage: UNK
     Route: 065
  8. OLANZAPINE [Interacting]
     Active Substance: OLANZAPINE
     Indication: Mood altered
     Dosage: UNK
     Route: 065
  9. OLANZAPINE [Interacting]
     Active Substance: OLANZAPINE
     Dosage: 1 DOSAGE FORM
     Route: 065
  10. OLANZAPINE [Interacting]
     Active Substance: OLANZAPINE
     Dosage: 2 DOSAGE FORM
     Route: 065
  11. OLANZAPINE [Interacting]
     Active Substance: OLANZAPINE
     Dosage: 2 DOSAGE FORM, QD (1 EVERY 1 DAYS)
     Route: 065
  12. OLANZAPINE [Interacting]
     Active Substance: OLANZAPINE
     Indication: Mood altered
     Dosage: 1 DOSAGE FORM
     Route: 065
  13. RANITIDINE [Interacting]
     Active Substance: RANITIDINE
     Indication: Product used for unknown indication
     Dosage: 2 DOSAGE FORM, QD, (1 EVERY 1 DAYS)
     Route: 065
  14. RANITIDINE [Interacting]
     Active Substance: RANITIDINE
     Dosage: 150 MILLIGRAM, BID (2 EVERY 1 DAYS)
     Route: 065
  15. VALPROIC ACID [Interacting]
     Active Substance: VALPROIC ACID
     Indication: Product used for unknown indication
     Dosage: 2 DOSAGE FORM, QD, (1 EVERY 1 DAYS)
     Route: 065
  16. VALPROIC ACID [Interacting]
     Active Substance: VALPROIC ACID
     Dosage: 2 DOSAGE FORM, QD, (1 EVERY 1 DAYS)
     Route: 065
  17. VALPROIC ACID [Interacting]
     Active Substance: VALPROIC ACID
     Dosage: 2 DOSAGE FORM, QD, (1 EVERY 1 DAYS)
     Route: 065
  18. VALPROIC ACID [Interacting]
     Active Substance: VALPROIC ACID
     Dosage: UNK
     Route: 065
  19. VALPROIC ACID [Interacting]
     Active Substance: VALPROIC ACID
     Dosage: 1 DOSAGE FORM, BID (2 EVERY 1 DAYS)
     Route: 065
  20. RANITIDINE [Interacting]
     Active Substance: RANITIDINE
     Indication: Product used for unknown indication
     Dosage: 2 DOSAGE FORM, QD, (1 EVERY 1 DAYS)
     Route: 065
  21. RANITIDINE [Interacting]
     Active Substance: RANITIDINE
     Dosage: 1 DOSAGE FORM, QD (2 EVERY 1 DAY)
     Route: 065
  22. RANITIDINE [Interacting]
     Active Substance: RANITIDINE
     Dosage: 150 MILLIGRAM, QD (2 EVERY 1 DAY)
     Route: 065
  23. VALPROATE [Interacting]
     Active Substance: VALPROIC ACID
     Indication: Product used for unknown indication
     Dosage: 1 DOSAGE FORM, BID (2 EVERY 1 DAYS)
     Route: 065
  24. VALPROATE [Interacting]
     Active Substance: VALPROIC ACID
     Dosage: 1 DOSAGE FORM
     Route: 065
  25. VALPROATE [Interacting]
     Active Substance: VALPROIC ACID
     Dosage: 2 DOSAGE FORM, QD (1 EVERY 1 DAYS
     Route: 065
  26. VALPROATE [Interacting]
     Active Substance: VALPROIC ACID
     Dosage: 2 DOSAGE FORM, QD (1 EVERY 1 DAYS
     Route: 065
  27. ACETAMINOPHEN [Interacting]
     Active Substance: ACETAMINOPHEN
     Indication: Pyrexia
     Dosage: 2 DOSAGE FORM
     Route: 065
  28. ACETAMINOPHEN [Interacting]
     Active Substance: ACETAMINOPHEN
     Indication: Pain
     Dosage: UNK
     Route: 065
  29. CLOZAPINE [Interacting]
     Active Substance: CLOZAPINE
     Indication: Product used for unknown indication
     Dosage: 1 DOSAGE FORM, QD, (1 EVERY 1 DAYS)
     Route: 065
  30. CLOZAPINE [Interacting]
     Active Substance: CLOZAPINE
     Dosage: UNK
     Route: 065
  31. CLOZAPINE [Interacting]
     Active Substance: CLOZAPINE
     Dosage: 1 DOSAGE FORM, QD, (1 EVERY 1 DAYS)
     Route: 065
  32. CLOZAPINE [Interacting]
     Active Substance: CLOZAPINE
     Dosage: 3 DOSAGE FORM, QD (1 EVERY 1 DAYS)
     Route: 065
  33. ALUMINUM HYDROXIDE\DIMETHICONE\MAGNESIUM HYDROXIDE [Interacting]
     Active Substance: ALUMINUM HYDROXIDE\DIMETHICONE\MAGNESIUM HYDROXIDE
     Indication: Abdominal discomfort
     Dosage: UNK
     Route: 065
  34. CHOLECALCIFEROL [Interacting]
     Active Substance: CHOLECALCIFEROL
     Indication: Product used for unknown indication
     Dosage: UNK
     Route: 065
  35. CHOLECALCIFEROL [Interacting]
     Active Substance: CHOLECALCIFEROL
     Dosage: 1 DOSAGE FORM
     Route: 065
  36. ESTRADIOL [Interacting]
     Active Substance: ESTRADIOL
     Indication: Product used for unknown indication
     Dosage: 1 DOSAGE FORM
     Route: 067
  37. CONJUGATED ESTROGENS [Interacting]
     Active Substance: ESTROGENS, CONJUGATED
     Indication: Product used for unknown indication
     Dosage: UNK
     Route: 061
  38. FLUMIST QUADRIVALENT [Interacting]
     Active Substance: INFLUENZA A VIRUS A/CALIFORNIA/7/2009 (H1N1) LIVE(ATTENUATED) ANTIGEN\INFLUENZA A VIRUS A/TEXAS/50/2
     Indication: Product used for unknown indication
     Dosage: UNK
     Route: 065
  39. REXULTI [Interacting]
     Active Substance: BREXPIPRAZOLE
     Indication: Product used for unknown indication
     Dosage: UNK
     Route: 065
  40. ACETAMINOPHEN AND CAFFEINE [Interacting]
     Active Substance: ACETAMINOPHEN\CAFFEINE
     Indication: Pyrexia
     Dosage: 3 DOSAGE FORM
     Route: 065
  41. ACETAMINOPHEN AND CAFFEINE [Interacting]
     Active Substance: ACETAMINOPHEN\CAFFEINE
     Indication: Pain
     Dosage: 3 DOSAGE FORM
     Route: 065
  42. ACETAMINOPHEN AND CAFFEINE [Interacting]
     Active Substance: ACETAMINOPHEN\CAFFEINE
     Dosage: 2 DOSAGE FORM, QD (2 EVERY ONE DAY)
     Route: 065
  43. ACETAMINOPHEN AND CAFFEINE [Interacting]
     Active Substance: ACETAMINOPHEN\CAFFEINE
     Dosage: 2 DOSAGE FORM, QD (2 EVERY ONE DAY)
     Route: 065
  44. ACETAMINOPHEN AND CAFFEINE [Interacting]
     Active Substance: ACETAMINOPHEN\CAFFEINE
     Dosage: 2 DOSAGE FORM
     Route: 065
  45. ACETAMINOPHEN AND CAFFEINE [Interacting]
     Active Substance: ACETAMINOPHEN\CAFFEINE
     Dosage: UNK
     Route: 065
  46. METHYLTESTOSTERONE [Interacting]
     Active Substance: METHYLTESTOSTERONE
     Indication: Product used for unknown indication
     Dosage: 5 GRAM
     Route: 065
  47. ALUMINUM HYDROXIDE [Interacting]
     Active Substance: ALUMINUM HYDROXIDE
     Indication: Abdominal discomfort
     Dosage: 30 MILLILITER
     Route: 048
  48. BREXPIPRAZOLE [Interacting]
     Active Substance: BREXPIPRAZOLE
     Indication: Product used for unknown indication
     Dosage: UNK
     Route: 065
  49. CLOTRIMAZOLE [Interacting]
     Active Substance: CLOTRIMAZOLE
     Indication: Rash
     Dosage: UNK
     Route: 065
  50. CLOTRIMAZOLE [Interacting]
     Active Substance: CLOTRIMAZOLE
     Dosage: 2 DOSAGE FORM, QD (1 EVERY 1 DAYS)
     Route: 065
  51. CLOTRIMAZOLE [Interacting]
     Active Substance: CLOTRIMAZOLE
     Dosage: 1 DOSAGE FORM, BID (2 EVERY 1 DAYS)
     Route: 065
  52. DIVIGEL [Interacting]
     Active Substance: ESTRADIOL
     Indication: Product used for unknown indication
     Dosage: UNK
     Route: 065
  53. ESTRADIOL [Interacting]
     Active Substance: ESTRADIOL
     Indication: Product used for unknown indication
     Dosage: 1 DOSAGE FORM
     Route: 067
  54. ESTRADIOL [Interacting]
     Active Substance: ESTRADIOL
     Dosage: 1 DOSAGE FORM
     Route: 067
  55. VITAMIN D3 [Interacting]
     Active Substance: CHOLECALCIFEROL
     Indication: Product used for unknown indication
     Dosage: 1 DOSAGE FORM
     Route: 065
  56. PREMARIN [Interacting]
     Active Substance: ESTROGENS, CONJUGATED
     Indication: Product used for unknown indication
     Dosage: UNK
     Route: 065
  57. RANITIDINE HYDROCHLORIDE [Interacting]
     Active Substance: RANITIDINE HYDROCHLORIDE
     Indication: Product used for unknown indication
     Dosage: 1 DOSAGE FORM, BID (2 EVERY 1 DAYS)
     Route: 065

REACTIONS (5)
  - Schizoaffective disorder [Unknown]
  - Electrocardiogram QT prolonged [Unknown]
  - Drug interaction [Unknown]
  - Drug level increased [Unknown]
  - Product use issue [Unknown]
